FAERS Safety Report 17521164 (Version 1)
Quarter: 2020Q1

REPORT INFORMATION
  Report Type: Report from Study
  Country: US (occurrence: US)
  Receive Date: 20200310
  Receipt Date: 20200310
  Transmission Date: 20200409
  Serious: Yes (Other)
  Sender: FDA-Public Use
  Company Number: US-MYLANLABS-2020M1024685

PATIENT
  Sex: Female

DRUGS (1)
  1. GLATIRAMER ACETATE INJECTION [Suspect]
     Active Substance: GLATIRAMER ACETATE
     Indication: RELAPSING-REMITTING MULTIPLE SCLEROSIS
     Dosage: 40 MILLIGRAM, 3XW (3 TIMES WEEKLY)
     Route: 058

REACTIONS (8)
  - Dizziness [Unknown]
  - Limb discomfort [Unknown]
  - Asthenia [Unknown]
  - Feeling cold [Unknown]
  - Headache [Unknown]
  - Ear pain [Unknown]
  - Pharyngeal swelling [Unknown]
  - Multiple sclerosis relapse [Unknown]
